FAERS Safety Report 7333715-6 (Version None)
Quarter: 2011Q1

REPORT INFORMATION
  Report Type: 
  Country: None (occurrence: None)
  Receive Date: 20110306
  Receipt Date: 20110211
  Transmission Date: 20110831
  Serious: No
  Sender: FDA-Public Use
  Company Number: US-BAYER-2011-014998

PATIENT
  Age: 58 Year
  Sex: Female
  Weight: 86 kg

DRUGS (9)
  1. CELEBREX [Concomitant]
     Indication: ARTHRITIS
     Dosage: UNK UNK, QD
     Route: 048
  2. GABAPENTIN [Concomitant]
     Route: 048
  3. UNCODEABLE ^UNCLASSIFIABLE^ [Concomitant]
  4. ALEVE (CAPLET) [Suspect]
     Indication: HEADACHE
     Dosage: UNK, UNKNOWN BOTTLE COUNT
     Route: 048
  5. ASPIRIN [Concomitant]
     Indication: HEADACHE
     Dosage: UNK UNK, PRN
     Route: 048
  6. ALLEGRA [Concomitant]
     Dosage: UNK UNK, QD
     Route: 048
  7. CENTRUM [Concomitant]
     Indication: VITAMIN SUPPLEMENTATION
     Dosage: UNK UNK, QD
     Route: 048
  8. VITAMIN D [Concomitant]
     Indication: VITAMIN SUPPLEMENTATION
     Route: 048
  9. OMEPRAZOLE [Concomitant]
     Dosage: UNK UNK, QD
     Route: 048

REACTIONS (2)
  - ABDOMINAL DISCOMFORT [None]
  - HEADACHE [None]
